FAERS Safety Report 9082841 (Version 1)
Quarter: 2013Q1

REPORT INFORMATION
  Report Type: Spontaneous
  Country: US (occurrence: US)
  Receive Date: 20130131
  Receipt Date: 20130131
  Transmission Date: 20140127
  Serious: No
  Sender: FDA-Public Use
  Company Number: US-ABBOTT-12P-163-0990354-00

PATIENT
  Sex: 0

DRUGS (1)
  1. HUMIRA [Suspect]
     Indication: REITER^S SYNDROME
     Dates: start: 201202

REACTIONS (5)
  - Unevaluable event [Recovered/Resolved]
  - Incorrect storage of drug [Not Recovered/Not Resolved]
  - Incorrect storage of drug [Unknown]
  - Incorrect dose administered [Unknown]
  - Poor quality drug administered [Unknown]
